FAERS Safety Report 16102402 (Version 1)
Quarter: 2019Q1

REPORT INFORMATION
  Report Type: Spontaneous
  Country: HU (occurrence: HU)
  Receive Date: 20190321
  Receipt Date: 20190321
  Transmission Date: 20190418
  Serious: Yes (Hospitalization)
  Sender: FDA-Public Use
  Company Number: HU-ALLERGAN-1912300US

PATIENT
  Sex: Male

DRUGS (1)
  1. CARIPRAZINE HCL - BP [Suspect]
     Active Substance: CARIPRAZINE HYDROCHLORIDE
     Indication: SCHIZOPHRENIA
     Dosage: THE DOSE WAS INCREASED FROM 1 MG TO 4.5 MG OVER 3 WEEKS.
     Route: 065
     Dates: start: 201902

REACTIONS (1)
  - Ill-defined disorder [Unknown]
